FAERS Safety Report 6106403-1 (Version None)
Quarter: 2009Q1

REPORT INFORMATION
  Report Type: 
  Country: None (occurrence: None)
  Receive Date: 20090306
  Receipt Date: 20090211
  Transmission Date: 20090719
  Serious: Yes (Hospitalization)
  Sender: FDA-Public Use
  Company Number: IT-B.I. PHARMACEUTICALS,INC./RIDGEFIELD-2009-IT-00038IT

PATIENT
  Sex: Female

DRUGS (2)
  1. VIRAMUNE [Suspect]
     Indication: ACQUIRED IMMUNODEFICIENCY SYNDROME
     Dosage: 400MG
     Route: 048
     Dates: start: 20060201, end: 20081220
  2. ABACAVIR SULFATE/LAMIVUDINE [Suspect]
     Indication: ACQUIRED IMMUNODEFICIENCY SYNDROME
     Dosage: 900MG
     Route: 048
     Dates: start: 20060201, end: 20081220

REACTIONS (1)
  - OSTEONECROSIS [None]
